FAERS Safety Report 4983078-6 (Version None)
Quarter: 2006Q2

REPORT INFORMATION
  Report Type: 
  Country: None (occurrence: None)
  Receive Date: 20060426
  Receipt Date: 20060112
  Transmission Date: 20061013
  Serious: Yes (Hospitalization)
  Sender: FDA-Public Use
  Company Number: GB-NOVOPROD-249977

PATIENT
  Age: 54 Year
  Sex: Male
  Weight: 64 kg

DRUGS (4)
  1. LEVEMIR [Suspect]
     Indication: DIABETES MELLITUS
     Dosage: 8 IU, QD
     Route: 058
     Dates: start: 20050511
  2. LEVEMIR [Suspect]
     Dosage: 6 IU, QD
     Route: 058
     Dates: start: 20051027
  3. LEVEMIR [Suspect]
     Dates: start: 20051027
  4. NOVORAPID [Concomitant]
     Indication: DIABETES MELLITUS
     Dosage: 16 IU, QD
     Route: 058
     Dates: start: 20050511

REACTIONS (3)
  - CIRCULATORY COLLAPSE [None]
  - FALL [None]
  - HYPOGLYCAEMIA [None]
